FAERS Safety Report 17862372 (Version 3)
Quarter: 2020Q3

REPORT INFORMATION
  Report Type: Spontaneous
  Country: US (occurrence: US)
  Receive Date: 20200604
  Receipt Date: 20200731
  Transmission Date: 20201103
  Serious: Yes (Other)
  Sender: FDA-Public Use
  Company Number: US-ALEXION PHARMACEUTICALS INC-A202007664

PATIENT
  Age: 39 Year
  Sex: Female

DRUGS (2)
  1. SOLIRIS [Suspect]
     Active Substance: ECULIZUMAB
     Indication: PAROXYSMAL NOCTURNAL HAEMOGLOBINURIA
  2. SOLIRIS [Suspect]
     Active Substance: ECULIZUMAB
     Indication: APLASTIC ANAEMIA
     Dosage: UNK
     Route: 065

REACTIONS (6)
  - Thrombosis [Unknown]
  - Myelodysplastic syndrome [Unknown]
  - Skin disorder [Unknown]
  - Gene mutation [Unknown]
  - Thrombocytopenia [Unknown]
  - Cytopenia [Unknown]
